FAERS Safety Report 8111053-1 (Version None)
Quarter: 2012Q1

REPORT INFORMATION
  Report Type: 
  Country: None (occurrence: None)
  Receive Date: 20120203
  Receipt Date: 20110317
  Transmission Date: 20120608
  Serious: No
  Sender: FDA-Public Use
  Company Number: US-GLAXOSMITHKLINE-A0918675A

PATIENT
  Age: 33 Year
  Sex: Female

DRUGS (3)
  1. LAMOTRIGINE [Suspect]
     Indication: ANXIETY
     Dosage: 25MG PER DAY
     Route: 048
     Dates: start: 20110303, end: 20110312
  2. BIAXIN [Suspect]
     Dates: start: 20110301, end: 20110309
  3. CELEXA [Concomitant]

REACTIONS (4)
  - RASH [None]
  - PRURITUS [None]
  - BURNING SENSATION [None]
  - ERYTHEMA [None]
